FAERS Safety Report 8500346-1 (Version None)
Quarter: 2012Q3

REPORT INFORMATION
  Report Type: 
  Country: None (occurrence: None)
  Receive Date: 20120710
  Receipt Date: 20120705
  Transmission Date: 20120928
  Serious: No
  Sender: FDA-Public Use
  Company Number: US-B.I. PHARMACEUTICALS,INC./RIDGEFIELD-2012-BP-15092BP

PATIENT
  Sex: Female

DRUGS (3)
  1. CRESTOR [Concomitant]
     Indication: BLOOD CHOLESTEROL INCREASED
     Dosage: 5 MG
     Route: 048
     Dates: start: 20120508
  2. PRADAXA [Suspect]
     Indication: ATRIAL FIBRILLATION
     Dosage: 300 MG
     Route: 048
     Dates: start: 20120601
  3. SOLATOL HCL [Concomitant]
     Indication: CARDIAC DISORDER
     Dosage: 160 MG
     Route: 048
     Dates: start: 20120508

REACTIONS (8)
  - POLYDIPSIA [None]
  - RECTAL HAEMORRHAGE [None]
  - THIRST [None]
  - ASTHENIA [None]
  - DIZZINESS [None]
  - POLLAKIURIA [None]
  - CONTUSION [None]
  - ARTHRALGIA [None]
